FAERS Safety Report 12326471 (Version 3)
Quarter: 2016Q3

REPORT INFORMATION
  Report Type: Report from Study
  Country: US (occurrence: US)
  Receive Date: 20160503
  Receipt Date: 20160722
  Transmission Date: 20161109
  Serious: Yes (Disabling, Other)
  Sender: FDA-Public Use
  Company Number: PHEH2016US010586

PATIENT
  Sex: Female
  Weight: 51.5 kg

DRUGS (3)
  1. METHOTREXATE SODIUM. [Suspect]
     Active Substance: METHOTREXATE SODIUM
     Indication: ARTHRITIS
     Dosage: 20 MG, UNK
     Route: 058
     Dates: start: 20160329, end: 201606
  2. ILARIS [Suspect]
     Active Substance: CANAKINUMAB
     Indication: JUVENILE IDIOPATHIC ARTHRITIS
     Dosage: UNK
     Route: 058
     Dates: start: 20160119, end: 20160420
  3. HYDROCORTISONE. [Suspect]
     Active Substance: HYDROCORTISONE
     Indication: PRODUCT USED FOR UNKNOWN INDICATION
     Dosage: 15MG IN AM, 5MG IN PM
     Route: 048

REACTIONS (4)
  - Drug ineffective [Recovered/Resolved]
  - Red blood cell sedimentation rate increased [Unknown]
  - Inappropriate schedule of drug administration [Unknown]
  - Juvenile idiopathic arthritis [Unknown]
